FAERS Safety Report 7603044-1 (Version None)
Quarter: 2011Q3

REPORT INFORMATION
  Report Type: 
  Country: None (occurrence: None)
  Receive Date: 20110712
  Receipt Date: 20110712
  Transmission Date: 20111222
  Serious: Yes (Other)
  Sender: FDA-Public Use
  Company Number: None

PATIENT
  Age: 36 Year
  Sex: Male
  Weight: 72.574 kg

DRUGS (1)
  1. METHYLPREDNISOLONE [Suspect]
     Indication: DERMATITIS CONTACT
     Dosage: UNKNOWN
     Route: 048
     Dates: start: 20110412, end: 20110417

REACTIONS (1)
  - DUODENAL ULCER [None]
